FAERS Safety Report 20679179 (Version 2)
Quarter: 2022Q2

REPORT INFORMATION
  Report Type: Report from Study
  Country: CA (occurrence: CA)
  Receive Date: 20220406
  Receipt Date: 20220414
  Transmission Date: 20220721
  Serious: Yes (Hospitalization, Other)
  Sender: FDA-Public Use
  Company Number: CA-TAKEDA-2022TUS021735

PATIENT
  Age: 71 Year
  Sex: Female

DRUGS (9)
  1. VEDOLIZUMAB [Suspect]
     Active Substance: VEDOLIZUMAB
     Indication: Crohn^s disease
     Dosage: 300 MILLIGRAM
     Route: 042
     Dates: start: 20180608
  2. VEDOLIZUMAB [Suspect]
     Active Substance: VEDOLIZUMAB
     Dosage: 300 MILLIGRAM, Q4WEEKS
     Route: 042
     Dates: start: 20181205
  3. VEDOLIZUMAB [Suspect]
     Active Substance: VEDOLIZUMAB
     Dosage: 300 MILLIGRAM, Q4WEEKS
     Route: 042
  4. OLANZAPINE [Concomitant]
     Active Substance: OLANZAPINE
     Indication: Anxiety
     Dosage: UNK
  5. OLANZAPINE [Concomitant]
     Active Substance: OLANZAPINE
     Indication: Depression
  6. WELLBUTRIN [Concomitant]
     Active Substance: BUPROPION HYDROCHLORIDE
     Indication: Anxiety
     Dosage: UNK
  7. WELLBUTRIN [Concomitant]
     Active Substance: BUPROPION HYDROCHLORIDE
     Indication: Depression
  8. LASIX [Concomitant]
     Active Substance: FUROSEMIDE
     Indication: Joint swelling
     Dosage: UNK
  9. Cortiment [Concomitant]
     Dosage: UNK

REACTIONS (3)
  - Hip fracture [Unknown]
  - Fall [Unknown]
  - Off label use [Unknown]

NARRATIVE: CASE EVENT DATE: 20181205
